FAERS Safety Report 15558690 (Version 2)
Quarter: 2018Q4

REPORT INFORMATION
  Report Type: Spontaneous
  Country: TR (occurrence: TR)
  Receive Date: 20181029
  Receipt Date: 20181126
  Transmission Date: 20190205
  Serious: Yes (Death, Hospitalization, Other)
  Sender: FDA-Public Use
  Company Number: TR-B.I. PHARMACEUTICALS,INC./RIDGEFIELD-2018-BI-052094

PATIENT
  Age: 75 Year
  Sex: Male

DRUGS (1)
  1. OFEV [Suspect]
     Active Substance: NINTEDANIB
     Indication: IDIOPATHIC PULMONARY FIBROSIS
     Route: 065
     Dates: start: 201801

REACTIONS (8)
  - Haemoglobin decreased [Unknown]
  - Intra-abdominal haemorrhage [Unknown]
  - Adenocarcinoma [Unknown]
  - Haemothorax [Unknown]
  - Skin lesion [Unknown]
  - Metastasis [Unknown]
  - General physical health deterioration [Fatal]
  - Pulmonary mass [Unknown]
